FAERS Safety Report 25779810 (Version 1)
Quarter: 2025Q3

REPORT INFORMATION
  Report Type: Spontaneous
  Country: US (occurrence: None)
  Receive Date: 20250908
  Receipt Date: 20250908
  Transmission Date: 20251020
  Serious: Yes (unspecified)
  Sender: FDA-CTU
  Company Number: None

PATIENT
  Age: 68 Year
  Sex: Female
  Weight: 59.55 kg

DRUGS (7)
  1. GOCOVRI [Suspect]
     Active Substance: AMANTADINE
     Indication: Dyskinesia
     Dosage: FREQUENCY : DAILY;?
     Route: 048
     Dates: start: 20250425, end: 20250831
  2. CARBIDOPA\LEVODOPA [Concomitant]
     Active Substance: CARBIDOPA\LEVODOPA
     Dates: start: 20200301
  3. PAROXETINE [Concomitant]
     Active Substance: PAROXETINE
     Dates: start: 20211101
  4. LOSARTAN [Concomitant]
     Active Substance: LOSARTAN
     Dates: start: 20250401
  5. ROPINIROLE [Concomitant]
     Active Substance: ROPINIROLE
     Dates: start: 20230424
  6. OMEPRAZOLE [Concomitant]
     Active Substance: OMEPRAZOLE
     Dates: start: 20230203
  7. ATORVASTATIN [Concomitant]
     Active Substance: ATORVASTATIN
     Dates: start: 20231115

REACTIONS (2)
  - Livedo reticularis [None]
  - Aphasia [None]

NARRATIVE: CASE EVENT DATE: 20250606
